FAERS Safety Report 7272105-1 (Version None)
Quarter: 2011Q1

REPORT INFORMATION
  Report Type: 
  Country: None (occurrence: None)
  Receive Date: 20110203
  Receipt Date: 20110121
  Transmission Date: 20110831
  Serious: Yes (Hospitalization)
  Sender: FDA-Public Use
  Company Number: US-CELGENEUS-163-21880-11012232

PATIENT
  Sex: Female
  Weight: 65.32 kg

DRUGS (22)
  1. BUPROPION [Concomitant]
     Route: 065
  2. KLOR-CON [Concomitant]
     Route: 065
  3. MULTI-VITAMIN [Concomitant]
     Route: 065
  4. TRAMADOL HCL [Concomitant]
     Route: 065
  5. ANASTROZOLE [Concomitant]
     Route: 065
  6. OXYBUTYNIN [Concomitant]
     Route: 065
  7. PREVACID [Concomitant]
     Route: 065
  8. ASPIRIN [Concomitant]
     Route: 065
  9. FORTEO [Concomitant]
     Route: 065
  10. GABAPENTIN [Concomitant]
     Route: 065
  11. GEMFIBROZIL [Concomitant]
     Route: 065
  12. REVLIMID [Suspect]
     Route: 048
     Dates: start: 20110101
  13. ENALAPRIL MALEATE [Concomitant]
     Route: 065
  14. METOPROLOL TARTRATE [Concomitant]
     Route: 065
  15. REVLIMID [Suspect]
     Indication: MULTIPLE MYELOMA
     Route: 048
     Dates: start: 20100815, end: 20100825
  16. COLACE [Concomitant]
     Route: 065
  17. DEXAMETHASONE [Concomitant]
     Route: 065
  18. LASIX [Concomitant]
     Route: 065
  19. ZOLOFT [Concomitant]
     Route: 065
  20. NITROFUR MAC [Concomitant]
     Route: 065
  21. CALCIUM [Concomitant]
     Route: 065
  22. LEVOTHYROXINE SODIUM [Concomitant]
     Route: 065

REACTIONS (3)
  - GAIT DISTURBANCE [None]
  - ANAEMIA [None]
  - BALANCE DISORDER [None]
